FAERS Safety Report 7904817-8 (Version None)
Quarter: 2011Q4

REPORT INFORMATION
  Report Type: 
  Country: None (occurrence: None)
  Receive Date: 20111109
  Receipt Date: 20111031
  Transmission Date: 20120403
  Serious: Yes (Hospitalization)
  Sender: FDA-Public Use
  Company Number: BR-ASTRAZENECA-2011SE60986

PATIENT
  Age: 63 Year
  Sex: Female
  Weight: 67 kg

DRUGS (10)
  1. LEVOTHYROXINE SODIUM [Concomitant]
     Indication: THYROID DISORDER
     Route: 048
  2. ATENOLOL [Suspect]
     Indication: HYPERTENSION
     Route: 048
     Dates: start: 20070101
  3. SUSTRATE [Concomitant]
     Dosage: PRN
     Dates: start: 20111007
  4. BRILINTA [Suspect]
     Route: 048
     Dates: start: 20111007, end: 20111010
  5. CRESTOR [Suspect]
     Route: 048
  6. BRILINTA [Suspect]
     Dosage: 4 TABLET
     Route: 048
     Dates: start: 20111006, end: 20111006
  7. CICLOPIROX [Suspect]
     Route: 065
  8. METFOMINA [Concomitant]
     Indication: DIABETES MELLITUS
     Route: 048
     Dates: start: 20070101
  9. ASPIRIN [Concomitant]
  10. PANTOPRAZOLE [Concomitant]
     Route: 048
     Dates: start: 20070101

REACTIONS (4)
  - CORONARY ARTERY OCCLUSION [None]
  - MALAISE [None]
  - DIARRHOEA [None]
  - ABDOMINAL PAIN [None]
